FAERS Safety Report 5017996-X (Version None)
Quarter: 2006Q2

REPORT INFORMATION
  Report Type: 
  Country: None (occurrence: None)
  Receive Date: 20060530
  Receipt Date: 20050322
  Transmission Date: 20061013
  Serious: Yes (Other)
  Sender: FDA-Public Use
  Company Number: 2005048498

PATIENT
  Age: 74 Year
  Sex: Female
  Weight: 76 kg

DRUGS (5)
  1. LYRICA [Suspect]
     Indication: PAIN
     Dosage: 150 MG (75 MG, 2 IN 1 D), ORAL
     Route: 048
     Dates: start: 20041220, end: 20050209
  2. AMITRIPTYLINE HCL [Concomitant]
  3. CANDESARTAN [Concomitant]
  4. TEMAZEPAM [Concomitant]
  5. CALCIU WITH VITAMIN D (CALCIUM PHOSPHATE, CALCIUM SODIUM LACTATE, ERGO [Concomitant]

REACTIONS (3)
  - MOUTH ULCERATION [None]
  - SWELLING FACE [None]
  - VEIN PAIN [None]
